FAERS Safety Report 8443250-X (Version None)
Quarter: 2012Q2

REPORT INFORMATION
  Report Type: 
  Country: None (occurrence: None)
  Receive Date: 20120617
  Receipt Date: 20120612
  Transmission Date: 20120825
  Serious: Yes (Other)
  Sender: FDA-Public Use
  Company Number: US-AMGEN-USASP2012037002

PATIENT
  Sex: Male

DRUGS (11)
  1. VENOFER [Concomitant]
     Dosage: UNK UNK, QWK
  2. MINOXIDIL [Concomitant]
     Dosage: UNK
  3. RENVELA [Concomitant]
     Dosage: UNK
  4. SERTRALINE HYDROCHLORIDE [Concomitant]
     Dosage: UNK
  5. COREG [Concomitant]
     Dosage: UNK
  6. CLONIDINE [Concomitant]
     Dosage: UNK
  7. DOCUSATE SODIUM [Concomitant]
     Dosage: UNK
  8. MIRALAX                            /00754501/ [Concomitant]
     Dosage: UNK
  9. HECTOROL [Concomitant]
     Dosage: UNK
  10. EPOGEN [Suspect]
     Indication: DIALYSIS
     Dosage: 16500 IU, 3 TIMES/WK
     Dates: start: 20110423
  11. CARDIZEM [Concomitant]

REACTIONS (1)
  - THERAPEUTIC RESPONSE DECREASED [None]
